FAERS Safety Report 9548694 (Version 1)
Quarter: 2013Q2

REPORT INFORMATION
  Report Type: Spontaneous
  Country: US (occurrence: None)
  Receive Date: 20130627
  Receipt Date: 20130627
  Transmission Date: 20140414
  Serious: Yes (Other)
  Sender: FDA-Public Use
  Company Number: 1000043424

PATIENT
  Age: 87 Year
  Sex: Female

DRUGS (8)
  1. LINZESS [Suspect]
     Indication: IRRITABLE BOWEL SYNDROME
     Route: 048
     Dates: start: 201302
  2. LEVOTHYROXINE (LEVOTHYROXINE SODIUM) [Concomitant]
  3. NEXIUM [Concomitant]
  4. DILTIAZEM (DILTIAZEM HYDROCHLORIDE) [Concomitant]
  5. MICARDIS (TELMISARTAN) [Concomitant]
  6. ALPRAZOLAM [Concomitant]
  7. RESTASIS (CICLOSPORIN) [Concomitant]
  8. ADVAIR (SERETIDE) [Concomitant]

REACTIONS (1)
  - Alopecia [None]
